FAERS Safety Report 15227027 (Version 1)
Quarter: 2018Q3

REPORT INFORMATION
  Report Type: Other
  Country: IT (occurrence: IT)
  Receive Date: 20180801
  Receipt Date: 20180801
  Transmission Date: 20181010
  Serious: Yes (Hospitalization)
  Sender: FDA-Public Use
  Company Number: IT-APOTEX-2018AP018109

PATIENT
  Age: 45 Year
  Sex: Male

DRUGS (8)
  1. FLUNOX [Suspect]
     Active Substance: FLURAZEPAM HYDROCHLORIDE
     Indication: INTENTIONAL SELF-INJURY
     Dosage: 300 MG, IN TOTAL
     Route: 048
     Dates: start: 20180501, end: 20180501
  2. DAPAROX                            /00830803/ [Suspect]
     Active Substance: PAROXETINE MESYLATE
     Indication: INTENTIONAL SELF-INJURY
     Dosage: 200 MG, IN TOTAL
     Route: 048
     Dates: start: 20180501, end: 20180501
  3. AUGMENTIN XR [Suspect]
     Active Substance: AMOXICILLIN\CLAVULANATE POTASSIUM
     Indication: INTENTIONAL SELF-INJURY
     Dosage: 8 DF, IN TOTAL
     Route: 048
     Dates: start: 20180501, end: 20180501
  4. BROMAZEPAM [Suspect]
     Active Substance: BROMAZEPAM
     Indication: INTENTIONAL SELF-INJURY
     Dosage: 15 MG, IN TOTAL
     Route: 048
     Dates: start: 20180501, end: 20180501
  5. TALOFEN [Suspect]
     Active Substance: PROMAZINE HYDROCHLORIDE
     Indication: INTENTIONAL SELF-INJURY
     Dosage: 100 GTT, IN TOTAL
     Route: 048
     Dates: start: 20180501, end: 20180501
  6. OLANZAPINE. [Suspect]
     Active Substance: OLANZAPINE
     Indication: INTENTIONAL SELF-INJURY
     Dosage: 50 MG, IN TOTAL
     Route: 048
     Dates: start: 20180501, end: 20180501
  7. ZOLPIDEM [Suspect]
     Active Substance: ZOLPIDEM\ZOLPIDEM TARTRATE
     Indication: INTENTIONAL SELF-INJURY
     Dosage: 200 MG, UNK IN TOTAL
     Route: 048
     Dates: start: 20180501, end: 20180501
  8. STILNOX [Suspect]
     Active Substance: ZOLPIDEM TARTRATE
     Indication: INTENTIONAL SELF-INJURY
     Dosage: 100 MG, IN TOTAL
     Route: 048
     Dates: start: 20180501, end: 20180501

REACTIONS (1)
  - Sopor [Unknown]

NARRATIVE: CASE EVENT DATE: 20180501
